FAERS Safety Report 5227238-8 (Version None)
Quarter: 2007Q1

REPORT INFORMATION
  Report Type: 
  Country: None (occurrence: None)
  Receive Date: 20070202
  Receipt Date: 20070125
  Transmission Date: 20070707
  Serious: Yes (Other)
  Sender: FDA-Public Use
  Company Number: FR-AVENTIS-200710354FR

PATIENT
  Age: 45 Year
  Sex: Male

DRUGS (3)
  1. TAVANIC [Suspect]
     Indication: SIGMOIDITIS
     Route: 048
     Dates: start: 20070101, end: 20070101
  2. FLAGYL [Suspect]
     Indication: SIGMOIDITIS
     Route: 048
     Dates: start: 20070101
  3. ACETAMINOPHEN [Concomitant]
     Indication: SIGMOIDITIS
     Dates: start: 20070101, end: 20070101

REACTIONS (5)
  - ASPARTATE AMINOTRANSFERASE INCREASED [None]
  - BLOOD ALKALINE PHOSPHATASE INCREASED [None]
  - BLOOD BILIRUBIN INCREASED [None]
  - MIXED HEPATOCELLULAR-CHOLESTATIC INJURY [None]
  - TENDONITIS [None]
